FAERS Safety Report 7602652-1 (Version None)
Quarter: 2011Q3

REPORT INFORMATION
  Report Type: 
  Country: None (occurrence: None)
  Receive Date: 20110712
  Receipt Date: 20110630
  Transmission Date: 20111222
  Serious: Yes (Hospitalization, Other)
  Sender: FDA-Public Use
  Company Number: US-ELI_LILLY_AND_COMPANY-US201104004161

PATIENT
  Sex: Male

DRUGS (32)
  1. FLUTICASONE PROPIONATE [Concomitant]
  2. FOLIC ACID [Concomitant]
  3. GUAIFENESIN [Concomitant]
  4. HEPARIN [Concomitant]
  5. ASPIRIN [Concomitant]
     Dosage: 81 MG, QD
  6. MULTI-VITAMIN [Concomitant]
  7. BISACODYL [Concomitant]
  8. HYDROCODONE BITARTRATE [Concomitant]
  9. HYDROMORPHONE HCL [Concomitant]
  10. MIDAZOLAM HCL [Concomitant]
  11. PROMETHAZINE [Concomitant]
  12. ALLOPURINOL [Concomitant]
     Dosage: 100 MG, QD
  13. NIACIN [Concomitant]
  14. CYMBALTA [Suspect]
     Dosage: 60 MG, UNK
  15. MUCOMYST [Concomitant]
  16. LEVOFLOXACIN [Concomitant]
  17. LOVAZA [Concomitant]
  18. ONDANSETRON [Concomitant]
  19. ZOLPIDEM [Concomitant]
  20. DOCUSATE [Concomitant]
  21. MILK OF MAGNESIA TAB [Concomitant]
  22. METHYLPREDNISOLONE [Concomitant]
  23. PANTOPRAZOLE [Concomitant]
  24. PRISTIQ [Concomitant]
     Dosage: 50 MG, QD
  25. CAMPRAL [Concomitant]
  26. TYLENOL                                 /SCH/ [Concomitant]
  27. ALBUTEROL SULFATE AUTOHALER [Concomitant]
  28. CLONIDINE [Concomitant]
  29. PHENYLEPHRINE HCL [Concomitant]
  30. PROPRANOLOL [Concomitant]
  31. ALPRAZOLAM [Concomitant]
  32. HYDRALAZINE HCL [Concomitant]

REACTIONS (1)
  - LUNG ADENOCARCINOMA [None]
